FAERS Safety Report 7441704-6 (Version None)
Quarter: 2011Q2

REPORT INFORMATION
  Report Type: 
  Country: None (occurrence: None)
  Receive Date: 20110428
  Receipt Date: 20110414
  Transmission Date: 20111010
  Serious: No
  Sender: FDA-Public Use
  Company Number: DE-ASTRAZENECA-2011SE22238

PATIENT
  Sex: Male

DRUGS (1)
  1. SEROQUEL XR [Suspect]
     Route: 048

REACTIONS (10)
  - HYPOTENSION [None]
  - DRY MOUTH [None]
  - OEDEMA PERIPHERAL [None]
  - VISION BLURRED [None]
  - ANAEMIA [None]
  - DERMATITIS ALLERGIC [None]
  - RHINITIS [None]
  - BLOOD CREATININE INCREASED [None]
  - EXTRASYSTOLES [None]
  - CONSTIPATION [None]
